FAERS Safety Report 5585595-7 (Version None)
Quarter: 2008Q1

REPORT INFORMATION
  Report Type: 
  Country: None (occurrence: None)
  Receive Date: 20080109
  Receipt Date: 20080108
  Transmission Date: 20080703
  Serious: Yes (Death)
  Sender: FDA-Public Use
  Company Number: B0501926A

PATIENT
  Age: 64 Year
  Sex: Female
  Weight: 55 kg

DRUGS (10)
  1. ALKERAN [Suspect]
     Indication: ALLOGENIC BONE MARROW TRANSPLANTATION THERAPY
     Dosage: 70MGM2 PER DAY
     Route: 042
     Dates: start: 20050213, end: 20050214
  2. FLUDARA [Concomitant]
     Indication: ALLOGENIC BONE MARROW TRANSPLANTATION THERAPY
     Dates: start: 20050209, end: 20050213
  3. GRAN [Concomitant]
     Dates: start: 20050219, end: 20050303
  4. TACROLIMUS HYDRATE [Concomitant]
     Indication: IMMUNOSUPPRESSION
     Route: 065
     Dates: start: 20050215, end: 20050307
  5. METHOTREXATE [Concomitant]
     Indication: IMMUNOSUPPRESSION
     Route: 065
     Dates: start: 20050217, end: 20050217
  6. METHOTREXATE [Concomitant]
     Route: 065
     Dates: start: 20050219, end: 20050219
  7. METHOTREXATE [Concomitant]
     Route: 065
     Dates: start: 20050222, end: 20050222
  8. POLYMYXIN B SULFATE [Concomitant]
     Route: 048
     Dates: start: 20050209, end: 20050219
  9. VANCOMYCIN HYDROCHLORIDE [Concomitant]
     Route: 048
     Dates: start: 20050209, end: 20050219
  10. DIFLUCAN [Concomitant]
     Route: 048
     Dates: start: 20050209, end: 20050219

REACTIONS (1)
  - THROMBOTIC MICROANGIOPATHY [None]
